FAERS Safety Report 8980601 (Version 1)
Quarter: 2012Q4

REPORT INFORMATION
  Report Type: Report from Study
  Country: ES (occurrence: ES)
  Receive Date: 20121221
  Receipt Date: 20121221
  Transmission Date: 20130627
  Serious: Yes (Hospitalization)
  Sender: FDA-Public Use
  Company Number: ES-JNJFOC-20121207960

PATIENT
  Sex: Male
  Weight: 86 kg

DRUGS (5)
  1. REMICADE [Suspect]
     Indication: COLITIS ULCERATIVE
     Route: 042
     Dates: start: 20110208, end: 20110321
  2. AZATHIOPRINE [Concomitant]
     Indication: COLITIS ULCERATIVE
     Dates: start: 20091124, end: 20110914
  3. PREDNISONE [Concomitant]
     Indication: COLITIS ULCERATIVE
     Dates: start: 2009, end: 20110814
  4. FLUOXETINE [Concomitant]
     Indication: DEPRESSION
     Dates: start: 2008
  5. REPAGLINIDE [Concomitant]
     Indication: DIABETES MELLITUS
     Dates: start: 20110901

REACTIONS (1)
  - Colectomy [Recovering/Resolving]
